FAERS Safety Report 14441236 (Version 1)
Quarter: 2018Q1

REPORT INFORMATION
  Report Type: Spontaneous
  Country: BR (occurrence: BR)
  Receive Date: 20180125
  Receipt Date: 20180125
  Transmission Date: 20180509
  Serious: Yes (Other)
  Sender: FDA-Public Use
  Company Number: BR-PFIZER INC-2018034422

PATIENT
  Sex: Male

DRUGS (1)
  1. FRONTAL [Suspect]
     Active Substance: ALPRAZOLAM
     Dosage: UNK
     Dates: start: 1991

REACTIONS (5)
  - Visual impairment [Unknown]
  - Drug dependence [Not Recovered/Not Resolved]
  - Loss of personal independence in daily activities [Unknown]
  - Nervous system disorder [Not Recovered/Not Resolved]
  - Intentional product misuse [Unknown]
